FAERS Safety Report 9798925 (Version 2)
Quarter: 2014Q1

REPORT INFORMATION
  Report Type: Spontaneous
  Country: US (occurrence: US)
  Receive Date: 20140106
  Receipt Date: 20140106
  Transmission Date: 20141002
  Serious: No
  Sender: FDA-Public Use
  Company Number: US-GILEAD-2010-0033550

PATIENT
  Age: 78 Year
  Sex: Female
  Weight: 79.38 kg

DRUGS (12)
  1. LETAIRIS [Suspect]
     Indication: PULMONARY HYPERTENSION
     Route: 048
     Dates: start: 20091116
  2. ATENOLOL [Concomitant]
  3. NIFEDIPINE XL [Concomitant]
  4. WARFARIN [Concomitant]
  5. ARIMIDEX [Concomitant]
  6. TORSEMIDE [Concomitant]
  7. LEVOTHYROXINE [Concomitant]
  8. MINOCYCLINE [Concomitant]
  9. ACUVITE [Concomitant]
  10. MULTIVITAMIN [Concomitant]
  11. FOLIC ACID [Concomitant]
  12. IRON [Concomitant]

REACTIONS (1)
  - Anaemia [Unknown]
